FAERS Safety Report 7474731-3 (Version None)
Quarter: 2011Q2

REPORT INFORMATION
  Report Type: 
  Country: None (occurrence: None)
  Receive Date: 20110509
  Receipt Date: 20110509
  Transmission Date: 20111010
  Serious: No
  Sender: FDA-Public Use
  Company Number: None

PATIENT
  Age: 45 Year
  Sex: Male

DRUGS (1)
  1. SIMPONI [Suspect]
     Indication: PSORIATIC ARTHROPATHY
     Dosage: 50MG QM SQ
     Route: 058
     Dates: start: 20110421, end: 20110505

REACTIONS (4)
  - HYPOAESTHESIA [None]
  - NAUSEA [None]
  - DIZZINESS [None]
  - PARAESTHESIA [None]
